FAERS Safety Report 17055089 (Version 3)
Quarter: 2019Q4

REPORT INFORMATION
  Report Type: Report from Study
  Country: DE (occurrence: DE)
  Receive Date: 20191120
  Receipt Date: 20191218
  Transmission Date: 20200122
  Serious: Yes (Other)
  Sender: FDA-Public Use
  Company Number: PHHY2018DE016920

PATIENT
  Sex: Male
  Weight: 102 kg

DRUGS (3)
  1. GILENYA [Suspect]
     Active Substance: FINGOLIMOD HYDROCHLORIDE
     Indication: MULTIPLE SCLEROSIS
     Dosage: 0.5 MG, QD
     Route: 048
     Dates: start: 20170518
  2. IBUHEXAL [Concomitant]
     Active Substance: IBUPROFEN
     Indication: MUSCULOSKELETAL DISCOMFORT
     Dosage: 600 MG, PRN
     Route: 065
     Dates: start: 20050822
  3. IBUHEXAL [Concomitant]
     Active Substance: IBUPROFEN
     Indication: BACK PAIN

REACTIONS (8)
  - Asthenia [Not Recovered/Not Resolved]
  - Somnolence [Not Recovered/Not Resolved]
  - Epilepsy [Recovered/Resolved]
  - Dysphagia [Not Recovered/Not Resolved]
  - Epilepsy [Not Recovered/Not Resolved]
  - Vitamin D deficiency [Recovered/Resolved]
  - Fine motor skill dysfunction [Not Recovered/Not Resolved]
  - Dyspnoea [Not Recovered/Not Resolved]

NARRATIVE: CASE EVENT DATE: 20180126
